FAERS Safety Report 11150997 (Version 1)
Quarter: 2015Q2

REPORT INFORMATION
  Report Type: Spontaneous
  Country: JP (occurrence: None)
  Receive Date: 20150528
  Receipt Date: 20150528
  Transmission Date: 20150821
  Serious: Yes (Other)
  Sender: FDA-Public Use
  Company Number: JP-20150097

PATIENT
  Age: 56 Year
  Sex: Male

DRUGS (3)
  1. LIPIODOL ULTRA FLUID [Suspect]
     Active Substance: ETHIODIZED OIL
     Indication: TRANSCATHETER ARTERIAL CHEMOEMBOLISATION
     Route: 013
     Dates: start: 20140123, end: 20140123
  2. GELATIN (GELTATIN) (GELATIN) [Concomitant]
  3. EPIRUBICIN (EPIRUBICIN) (EPIRUBICIN) [Concomitant]
     Active Substance: EPIRUBICIN

REACTIONS (2)
  - Alanine aminotransferase increased [None]
  - Liver abscess [None]

NARRATIVE: CASE EVENT DATE: 20140124
